FAERS Safety Report 19421902 (Version 1)
Quarter: 2021Q2

REPORT INFORMATION
  Report Type: Report from Study
  Country: CO (occurrence: CO)
  Receive Date: 20210616
  Receipt Date: 20210616
  Transmission Date: 20210717
  Serious: Yes (Death, Hospitalization, Other)
  Sender: FDA-Public Use
  Company Number: CO-SA-2021SA197989

PATIENT
  Age: 34 Year
  Sex: Female

DRUGS (1)
  1. ALEMTUZUMAB [Suspect]
     Active Substance: ALEMTUZUMAB
     Indication: MULTIPLE SCLEROSIS
     Dosage: 12 MG, QD
     Route: 041
     Dates: start: 20190710, end: 20190712

REACTIONS (4)
  - Platelet count decreased [Fatal]
  - Oral pain [Fatal]
  - Respiratory distress [Fatal]
  - Herpes virus infection [Fatal]

NARRATIVE: CASE EVENT DATE: 20210609
